FAERS Safety Report 6037792-4 (Version None)
Quarter: 2009Q1

REPORT INFORMATION
  Report Type: 
  Country: None (occurrence: None)
  Receive Date: 20090113
  Receipt Date: 20081231
  Transmission Date: 20090719
  Serious: Yes (Other)
  Sender: FDA-Public Use
  Company Number: 2008AL012397

PATIENT
  Age: 60 Year
  Sex: Female

DRUGS (6)
  1. BACLOFEN [Suspect]
     Indication: MULTIPLE SCLEROSIS
     Dosage: 60 MG;QD
  2. CARBAMAZEPINE [Suspect]
     Indication: MULTIPLE SCLEROSIS
     Dosage: 200 MG;TID;PO
     Route: 048
  3. ACETAMINOPHEN [Concomitant]
  4. TRIMTETHOPRIM [Concomitant]
  5. BISOPROLOL [Concomitant]
  6. CITALOPRAM HYDROBROMIDE [Concomitant]

REACTIONS (3)
  - DYSPHAGIA [None]
  - ILL-DEFINED DISORDER [None]
  - PNEUMONIA [None]
